FAERS Safety Report 8209765-4 (Version None)
Quarter: 2012Q1

REPORT INFORMATION
  Report Type: 
  Country: None (occurrence: None)
  Receive Date: 20120314
  Receipt Date: 20120305
  Transmission Date: 20120608
  Serious: Yes (Other)
  Sender: FDA-Public Use
  Company Number: BR-BAYER-2012-020280

PATIENT
  Age: 36 Year
  Sex: Female

DRUGS (7)
  1. SALMETEROL [Concomitant]
     Dosage: 50 ?G, BID
     Route: 055
  2. FLUTICASONE PROPIONATE [Concomitant]
     Dosage: 300 ?G, QD
     Route: 055
  3. ASPIRIN [Suspect]
  4. MONTELUKAST [Concomitant]
     Dosage: 10 MG, QD
     Route: 048
  5. FLUTICASONE PROPIONATE [Concomitant]
     Dosage: 250 ?G, BID
     Route: 055
  6. FEXOFENADINE [Concomitant]
     Dosage: 180 MG, QD
     Route: 048
  7. HYDROXYZINE [Concomitant]
     Dosage: 25 MG, QD
     Route: 048

REACTIONS (1)
  - DRUG HYPERSENSITIVITY [None]
